FAERS Safety Report 4503460-0 (Version None)
Quarter: 2004Q4

REPORT INFORMATION
  Report Type: 
  Country: None (occurrence: None)
  Receive Date: 20041112
  Receipt Date: 20041102
  Transmission Date: 20050328
  Serious: Yes (Hospitalization)
  Sender: FDA-Public Use
  Company Number: 2004242951FR

PATIENT
  Age: 73 Year
  Sex: Female
  Weight: 79 kg

DRUGS (5)
  1. SOLU-MEDROL [Suspect]
     Dosage: 80 MG, QD, IV
     Route: 042
     Dates: start: 20040517, end: 20040518
  2. LEUCOVORIN CALCIUM [Suspect]
     Dosage: 325 MG, QD, IV
     Route: 042
     Dates: start: 20040517, end: 20040517
  3. ONDANSETRON [Suspect]
     Dosage: 8 MG, QD, IV
     Route: 042
     Dates: start: 20040517, end: 20040518
  4. DACPLAT (OXALIPLATIN) POWDER, STERILE [Suspect]
     Dosage: 120 MG, QD, IV
     Route: 042
     Dates: start: 20040517, end: 20040517
  5. FLUOROURACIL [Suspect]

REACTIONS (3)
  - CHILLS [None]
  - MALAISE [None]
  - PYREXIA [None]
